FAERS Safety Report 18092322 (Version 1)
Quarter: 2020Q3

REPORT INFORMATION
  Report Type: Spontaneous
  Country: US (occurrence: US)
  Receive Date: 20200730
  Receipt Date: 20200730
  Transmission Date: 20201103
  Serious: Yes (Disabling)
  Sender: FDA-Public Use
  Company Number: None

PATIENT
  Age: 51 Year
  Sex: Female
  Weight: 73.8 kg

DRUGS (1)
  1. NP THYROID [Suspect]
     Active Substance: LEVOTHYROXINE\LIOTHYRONINE
     Indication: HYPOTHYROIDISM
     Dosage: ?          QUANTITY:1 TABLET(S);?
     Route: 048

REACTIONS (10)
  - Foreign body in throat [None]
  - Nausea [None]
  - Lip disorder [None]
  - Vomiting [None]
  - Paraesthesia [None]
  - Headache [None]
  - Hyperhidrosis [None]
  - Gait disturbance [None]
  - Dizziness [None]
  - Dysphagia [None]

NARRATIVE: CASE EVENT DATE: 20200323
